FAERS Safety Report 7613888 (Version 2)
Quarter: 2012Q4

REPORT INFORMATION
  Report Type: Report from Study
  Country: FR (occurrence: FR)
  Receive Date: 20101001
  Receipt Date: 20121015
  Transmission Date: 20130627
  Serious: Yes (Hospitalization)
  Sender: FDA-Public Use
  Company Number: FR-US-EMD SERONO, INC.-220002N06FRA

PATIENT
  Age: 56 Year
  Sex: Female
  Weight: 79 kg

DRUGS (7)
  1. SAIZEN [Suspect]
     Indication: HYPOPITUITARISM
     Dates: start: 20030625
  2. HYDROCORTISONE [Suspect]
     Indication: HYPOPITUITARISM
     Route: 048
     Dates: start: 1982
  3. KLIOGEST [Suspect]
     Indication: HYPOPITUITARISM
     Route: 048
     Dates: start: 20030806
  4. LEVOTHYROX [Suspect]
     Indication: HYPOPITUITARISM
     Route: 048
     Dates: start: 20051207
  5. LIPANTHYL [Suspect]
     Indication: HYPERTRIGLYCERIDAEMIA
     Route: 048
     Dates: start: 20040622
  6. OROCAL D3 [Suspect]
     Indication: OSTEOPENIA
     Route: 048
     Dates: start: 20060404
  7. PROZAC [Suspect]
     Indication: DEPRESSION
     Route: 048
     Dates: start: 20030806

REACTIONS (2)
  - Pharyngitis [Recovered/Resolved]
  - Meningism [Recovered/Resolved]
